FAERS Safety Report 15300798 (Version 2)
Quarter: 2018Q3

REPORT INFORMATION
  Report Type: Spontaneous
  Country: US (occurrence: US)
  Receive Date: 20180821
  Receipt Date: 20180918
  Transmission Date: 20181010
  Serious: Yes (Hospitalization)
  Sender: FDA-Public Use
  Company Number: US-JNJFOC-20180812785

PATIENT
  Sex: Male

DRUGS (1)
  1. TREMFYA [Suspect]
     Active Substance: GUSELKUMAB
     Indication: PSORIASIS
     Dosage: NDC CODE 57894 640 01
     Route: 058

REACTIONS (3)
  - Kidney infection [Recovering/Resolving]
  - Nephrolithiasis [Recovering/Resolving]
  - Pericardial effusion [Unknown]
